FAERS Safety Report 7443244-7 (Version None)
Quarter: 2011Q2

REPORT INFORMATION
  Report Type: 
  Country: None (occurrence: None)
  Receive Date: 20110428
  Receipt Date: 20110420
  Transmission Date: 20111010
  Serious: Yes (Other)
  Sender: FDA-Public Use
  Company Number: B0715061A

PATIENT

DRUGS (1)
  1. LAMICTAL [Suspect]
     Route: 064

REACTIONS (2)
  - HAEMORRHAGE FOETAL [None]
  - DRUG EXPOSURE DURING PREGNANCY [None]
